FAERS Safety Report 8478508-1 (Version None)
Quarter: 2012Q2

REPORT INFORMATION
  Report Type: 
  Country: None (occurrence: None)
  Receive Date: 20120629
  Receipt Date: 20120619
  Transmission Date: 20120825
  Serious: Yes (Hospitalization)
  Sender: FDA-Public Use
  Company Number: FR-JNJFOC-20120609929

PATIENT
  Sex: Female
  Weight: 46 kg

DRUGS (12)
  1. BISOPROLOL FUMARATE [Concomitant]
     Route: 065
  2. VINCRISTINE [Suspect]
     Indication: NON-HODGKIN'S LYMPHOMA
     Route: 042
     Dates: start: 20111229
  3. DOXORUBICIN HYDROCHLORIDE [Suspect]
     Route: 042
     Dates: start: 20111229
  4. MABTHERA [Suspect]
     Route: 042
     Dates: start: 20111229, end: 20111229
  5. CYCLOPHOSPHAMIDE [Suspect]
     Indication: NON-HODGKIN'S LYMPHOMA
     Route: 042
  6. NEULASTA [Suspect]
     Indication: CHEMOTHERAPY
     Route: 058
     Dates: start: 20111230, end: 20111230
  7. VINCRISTINE [Suspect]
     Route: 042
  8. PREDNISONE [Suspect]
     Indication: NON-HODGKIN'S LYMPHOMA
     Route: 042
  9. PREDNISONE [Suspect]
     Route: 042
     Dates: start: 20111229
  10. DOXORUBICIN HYDROCHLORIDE [Suspect]
     Indication: NON-HODGKIN'S LYMPHOMA
     Route: 042
  11. MABTHERA [Suspect]
     Indication: LYMPHOMA
     Route: 042
  12. CYCLOPHOSPHAMIDE [Suspect]
     Route: 042
     Dates: start: 20111229

REACTIONS (2)
  - FEBRILE BONE MARROW APLASIA [None]
  - NEUTROPENIA [None]
